FAERS Safety Report 5531347-3 (Version None)
Quarter: 2007Q4

REPORT INFORMATION
  Report Type: 
  Country: None (occurrence: None)
  Receive Date: 20071128
  Receipt Date: 20071114
  Transmission Date: 20080405
  Serious: Yes (Death)
  Sender: FDA-Public Use
  Company Number: 100#08#2007-04733

PATIENT
  Age: 16 Year
  Sex: Female

DRUGS (7)
  1. METHOTREXATE [Suspect]
     Indication: MEDULLOBLASTOMA
  2. CISPLATIN [Suspect]
     Indication: MEDULLOBLASTOMA
  3. CARBOPLATIN [Suspect]
     Indication: MEDULLOBLASTOMA
  4. CYCLOPHOSPHAMIDE [Suspect]
     Indication: MEDULLOBLASTOMA
  5. VINCRISTINE [Suspect]
     Indication: MEDULLOBLASTOMA
  6. ETOPOSIDE [Suspect]
     Indication: MEDULLOBLASTOMA
  7. CYTARABINE [Suspect]
     Indication: MEDULLOBLASTOMA

REACTIONS (3)
  - CONVULSION [None]
  - GLIOMA [None]
  - STRESS [None]
